FAERS Safety Report 24833808 (Version 2)
Quarter: 2025Q1

REPORT INFORMATION
  Report Type: Spontaneous
  Country: PL (occurrence: PL)
  Receive Date: 20250112
  Receipt Date: 20250121
  Transmission Date: 20250408
  Serious: Yes (Other)
  Sender: PFIZER
  Company Number: PL-PFIZER INC-202500002424

PATIENT
  Age: 43 Year
  Sex: Male

DRUGS (1)
  1. DOSTINEX [Suspect]
     Active Substance: CABERGOLINE
     Indication: Pituitary tumour

REACTIONS (9)
  - Bipolar disorder [Unknown]
  - Starvation [Unknown]
  - Weight decreased [Unknown]
  - Mania [Unknown]
  - Headache [Unknown]
  - Visual impairment [Unknown]
  - Vomiting [Unknown]
  - Decreased appetite [Unknown]
  - Intentional product misuse [Unknown]
